FAERS Safety Report 8045013-6 (Version None)
Quarter: 2012Q1

REPORT INFORMATION
  Report Type: 
  Country: None (occurrence: None)
  Receive Date: 20120113
  Receipt Date: 20120110
  Transmission Date: 20120608
  Serious: Yes (Other)
  Sender: FDA-Public Use
  Company Number: PHHY2011JP107297

PATIENT
  Age: 50 Year
  Sex: Female

DRUGS (3)
  1. CYCLOPHOSPHAMIDE [Concomitant]
     Dosage: 4 COURCES
     Route: 065
  2. ADRIAMYCIN PFS [Concomitant]
     Dosage: 4 COURCES
     Route: 065
  3. ZOMETA [Suspect]
     Indication: METASTASES TO BONE
     Dosage: UNK UKN, UNK
     Route: 041

REACTIONS (12)
  - PRIMARY SEQUESTRUM [None]
  - NEOPLASM PROGRESSION [None]
  - METASTASES TO LIVER [None]
  - METASTASES TO PLEURA [None]
  - SKIN LESION [None]
  - OSTEONECROSIS OF JAW [None]
  - SKIN DISORDER [None]
  - BONE FISTULA [None]
  - SWELLING [None]
  - EXPOSED BONE IN JAW [None]
  - METASTASES TO LUNG [None]
  - NEOPLASM MALIGNANT [None]
